FAERS Safety Report 23324633 (Version 2)
Quarter: 2024Q1

REPORT INFORMATION
  Report Type: Spontaneous
  Country: JP (occurrence: JP)
  Receive Date: 20231221
  Receipt Date: 20240129
  Transmission Date: 20240410
  Serious: Yes (Hospitalization, Other)
  Sender: FDA-Public Use
  Company Number: JP-TAKEDA-2023TJP017020

PATIENT
  Age: 3 Decade
  Sex: Female

DRUGS (2)
  1. ENTYVIO [Suspect]
     Active Substance: VEDOLIZUMAB
     Indication: Colitis ulcerative
     Dosage: 300 MILLIGRAM
     Route: 041
     Dates: start: 20230824
  2. WARFARIN [Suspect]
     Active Substance: WARFARIN
     Indication: Cardiac disorder
     Dosage: UNK
     Route: 048

REACTIONS (1)
  - Ovarian haemorrhage [Recovering/Resolving]

NARRATIVE: CASE EVENT DATE: 20231207
